FAERS Safety Report 17658839 (Version 1)
Quarter: 2020Q2

REPORT INFORMATION
  Report Type: Spontaneous
  Country: SE (occurrence: SE)
  Receive Date: 20200413
  Receipt Date: 20200413
  Transmission Date: 20200713
  Serious: Yes (Other)
  Sender: FDA-Public Use
  Company Number: SE-AUROBINDO-AUR-APL-2020-017535

PATIENT
  Age: 60 Year
  Sex: Female
  Weight: 105 kg

DRUGS (2)
  1. LOSARTAN POTASSIUM / HYDROCHLOROTHIAZIDE FILM-COATED TABLETS [Suspect]
     Active Substance: HYDROCHLOROTHIAZIDE\LOSARTAN POTASSIUM
     Indication: HYPERTENSION
     Dosage: 1 DOSAGE FORM, ONCE A DAY (TABLET 50 MG 12.5 MG)
     Route: 065
     Dates: start: 20200309, end: 20200313
  2. ESOMEPRAZOLE. [Concomitant]
     Active Substance: ESOMEPRAZOLE MAGNESIUM
     Indication: PRODUCT USED FOR UNKNOWN INDICATION
     Dosage: UNK
     Route: 065
     Dates: start: 20190101

REACTIONS (6)
  - Migraine [Recovered/Resolved]
  - Photophobia [Recovered/Resolved]
  - Derealisation [Recovered/Resolved]
  - Tinnitus [Recovered/Resolved]
  - Irritability [Recovered/Resolved]
  - Fatigue [Recovered/Resolved]

NARRATIVE: CASE EVENT DATE: 202003
